FAERS Safety Report 5012196-1 (Version None)
Quarter: 2006Q2

REPORT INFORMATION
  Report Type: 
  Country: None (occurrence: None)
  Receive Date: 20060524
  Receipt Date: 20060511
  Transmission Date: 20061013
  Serious: Yes (Hospitalization, Other)
  Sender: FDA-Public Use
  Company Number: 2006057549

PATIENT
  Age: 72 Year
  Sex: Female
  Weight: 116.1208 kg

DRUGS (10)
  1. CELEBREX [Suspect]
     Indication: ARTHRITIS
     Dosage: 200 MG (200 MG, 1 IN 1 D), UNKNOWN
     Route: 065
     Dates: start: 20041026, end: 20041027
  2. ADVIL [Concomitant]
  3. ASPIRIN [Concomitant]
  4. ACETAMINOPHEN [Concomitant]
  5. VIOXX [Concomitant]
  6. AMARYL [Concomitant]
  7. ALTACE [Concomitant]
  8. METOPROLOL SUCCINATE [Concomitant]
  9. WARFARIN (WARFARIN) [Concomitant]
  10. SYNTHROID [Concomitant]

REACTIONS (7)
  - AMNESIA [None]
  - ATRIAL FIBRILLATION [None]
  - BLINDNESS [None]
  - CEREBROVASCULAR ACCIDENT [None]
  - HALLUCINATION, VISUAL [None]
  - IRON DEFICIENCY ANAEMIA [None]
  - TRANSIENT ISCHAEMIC ATTACK [None]
